FAERS Safety Report 20518614 (Version 1)
Quarter: 2022Q1

REPORT INFORMATION
  Report Type: Spontaneous
  Country: CN (occurrence: None)
  Receive Date: 20220225
  Receipt Date: 20220225
  Transmission Date: 20220423
  Serious: Yes (Hospitalization, Other)
  Sender: FDA-Public Use
  Company Number: 2022A082035

PATIENT
  Age: 30686 Day
  Sex: Male
  Weight: 60 kg

DRUGS (1)
  1. BUDESONIDE\FORMOTEROL FUMARATE [Suspect]
     Active Substance: BUDESONIDE\FORMOTEROL FUMARATE
     Indication: Dyspnoea
     Dosage: 160 UG TWICE A DAY
     Route: 055
     Dates: start: 20190201, end: 20220215

REACTIONS (4)
  - Oral candidiasis [Recovering/Resolving]
  - Dry mouth [Unknown]
  - Oropharyngeal pain [Unknown]
  - Productive cough [Unknown]

NARRATIVE: CASE EVENT DATE: 20220215
